FAERS Safety Report 11416740 (Version 1)
Quarter: 2015Q3

REPORT INFORMATION
  Report Type: Spontaneous
  Country: GB (occurrence: GB)
  Receive Date: 20150825
  Receipt Date: 20150825
  Transmission Date: 20151125
  Serious: Yes (Disabling, Other)
  Sender: FDA-Public Use
  Company Number: GB-009507513-1508GBR009800

PATIENT
  Age: 6 Year
  Sex: Male
  Weight: 17.23 kg

DRUGS (1)
  1. SINGULAIR [Suspect]
     Active Substance: MONTELUKAST SODIUM
     Indication: ASTHMA
     Dosage: 4 MG, UNK
     Route: 048
     Dates: start: 20100108, end: 20141208

REACTIONS (11)
  - Anxiety [Recovering/Resolving]
  - Fatigue [Recovering/Resolving]
  - Fear [Recovering/Resolving]
  - Pallor [Recovering/Resolving]
  - Nightmare [Recovering/Resolving]
  - Depressed mood [Recovering/Resolving]
  - Malaise [Recovering/Resolving]
  - Heart rate increased [Recovering/Resolving]
  - Agitation [Recovering/Resolving]
  - Nausea [Recovering/Resolving]
  - Panic attack [Recovering/Resolving]

NARRATIVE: CASE EVENT DATE: 20141201
